FAERS Safety Report 21077093 (Version 1)
Quarter: 2022Q3

REPORT INFORMATION
  Report Type: Spontaneous
  Country: US (occurrence: None)
  Receive Date: 20220713
  Receipt Date: 20220713
  Transmission Date: 20221027
  Serious: Yes (Other)
  Sender: FDA-Public Use
  Company Number: None

PATIENT
  Age: 36 Year
  Sex: Female
  Weight: 103.5 kg

DRUGS (5)
  1. PAXLOVID [Suspect]
     Active Substance: NIRMATRELVIR\RITONAVIR
     Indication: COVID-19
     Dosage: FREQUENCY : TWICE A DAY;?
     Route: 048
     Dates: start: 20220711, end: 20220712
  2. One-day Multi-vitamin [Concomitant]
     Dates: start: 20210101, end: 20220709
  3. CULTURELLE [Concomitant]
     Active Substance: LACTOBACILLUS RHAMNOSUS
     Dates: start: 20210101
  4. BIOTIN [Concomitant]
     Active Substance: BIOTIN
     Dates: start: 20210101, end: 20220709
  5. FISH OIL [Concomitant]
     Active Substance: FISH OIL
     Dates: start: 20210101, end: 20220709

REACTIONS (4)
  - Oropharyngeal pain [None]
  - Odynophagia [None]
  - Throat tightness [None]
  - Nausea [None]

NARRATIVE: CASE EVENT DATE: 20220712
